FAERS Safety Report 9052277 (Version 3)
Quarter: 2013Q1

REPORT INFORMATION
  Report Type: Spontaneous
  Country: IT (occurrence: IT)
  Receive Date: 20130206
  Receipt Date: 20130321
  Transmission Date: 20140127
  Serious: Yes (Other)
  Sender: FDA-Public Use
  Company Number: IT-PFIZER INC-2013046035

PATIENT
  Age: 64 Year
  Sex: Female

DRUGS (4)
  1. DEPO-MEDROL [Suspect]
     Indication: ENTHESOPATHY
     Dosage: 1 DF, 1X/DAY
     Route: 035
     Dates: start: 20121227, end: 20121227
  2. QUINAZIDE [Concomitant]
  3. LORANS [Concomitant]
  4. PANTORC [Concomitant]

REACTIONS (2)
  - Tachycardia [Recovering/Resolving]
  - Atrial fibrillation [Recovering/Resolving]
